FAERS Safety Report 6131562-4 (Version None)
Quarter: 2009Q1

REPORT INFORMATION
  Report Type: 
  Country: None (occurrence: None)
  Receive Date: 20090325
  Receipt Date: 20081216
  Transmission Date: 20090719
  Serious: Yes (Other)
  Sender: FDA-Public Use
  Company Number: US-BRISTOL-MYERS SQUIBB COMPANY-14369946

PATIENT
  Age: 54 Year
  Sex: Male

DRUGS (2)
  1. ERBITUX [Suspect]
     Indication: HEAD AND NECK CANCER
     Dosage: RECEIVED A LOADING DOSE OF ERBITUX 400MG
     Dates: start: 20081007, end: 20081007
  2. BENADRYL [Concomitant]
     Indication: PREMEDICATION

REACTIONS (2)
  - HYPOTENSION [None]
  - RASH [None]
